FAERS Safety Report 23884353 (Version 1)
Quarter: 2024Q2

REPORT INFORMATION
  Report Type: Spontaneous
  Country: US (occurrence: US)
  Receive Date: 20240522
  Receipt Date: 20240522
  Transmission Date: 20240716
  Serious: No
  Sender: FDA-Public Use
  Company Number: US-CATALYST PHARMACEUTICALS-US-CATA-24-00287

PATIENT
  Age: 19 Year
  Sex: Male
  Weight: 84.37 kg

DRUGS (6)
  1. AGAMREE [Suspect]
     Active Substance: VAMOROLONE
     Indication: Becker^s muscular dystrophy
     Dosage: 7.5 ML ONCE DAILY
     Route: 048
     Dates: start: 20240327
  2. CARVEDILOL [Concomitant]
     Active Substance: CARVEDILOL
     Indication: Cardiovascular disorder
     Dosage: 6.25 MG TWICE DAILY
     Route: 065
  3. FISH OIL [Concomitant]
     Active Substance: FISH OIL
     Indication: Cardiovascular disorder
     Dosage: 500 MG ONCE DAILY
     Route: 065
  4. LISINOPRIL [Concomitant]
     Active Substance: LISINOPRIL
     Indication: Cardiovascular disorder
     Dosage: 5 MG ONCE DAILY
     Route: 065
  5. SPIRONOLACTONE [Concomitant]
     Active Substance: SPIRONOLACTONE
     Indication: Cardiovascular disorder
     Dosage: 25 MG ONCE DAILY
     Route: 065
  6. VITAMIN D3 [Concomitant]
     Active Substance: CHOLECALCIFEROL
     Indication: Product used for unknown indication
     Dosage: 1250 MCG ONCE WEEKLY
     Route: 065

REACTIONS (1)
  - Product use in unapproved indication [Unknown]

NARRATIVE: CASE EVENT DATE: 20240327
